FAERS Safety Report 4885902-4 (Version None)
Quarter: 2006Q1

REPORT INFORMATION
  Report Type: 
  Country: None (occurrence: None)
  Receive Date: 20060117
  Receipt Date: 20051111
  Transmission Date: 20060701
  Serious: Yes (Other)
  Sender: FDA-Public Use
  Company Number: 2006BH000292

PATIENT
  Age: 66 Year
  Sex: Male

DRUGS (5)
  1. DEXTROSE 5% [Suspect]
     Indication: PULMONARY FIBROSIS
     Dosage: 1000 ML; ONCE; IV; 1000 ML; ONCE; IV
     Route: 042
     Dates: start: 20051024, end: 20051024
  2. DEXTROSE 5% [Suspect]
     Indication: PULMONARY FIBROSIS
     Dosage: 1000 ML; ONCE; IV; 1000 ML; ONCE; IV
     Route: 042
     Dates: start: 20051105, end: 20051105
  3. POTASSIUM CHLORIDE [Concomitant]
  4. SODIUM CHLORIDE [Concomitant]
  5. CALCIUM GLUCONATE [Concomitant]

REACTIONS (3)
  - PHARMACEUTICAL PRODUCT COMPLAINT [None]
  - POOR QUALITY DRUG ADMINISTERED [None]
  - SHOCK [None]
